FAERS Safety Report 5506607-2 (Version None)
Quarter: 2007Q4

REPORT INFORMATION
  Report Type: 
  Country: None (occurrence: None)
  Receive Date: 20071105
  Receipt Date: 20071030
  Transmission Date: 20080405
  Serious: Yes (Other)
  Sender: FDA-Public Use
  Company Number: NO-AVENTIS-200719910GDDC

PATIENT
  Sex: Female

DRUGS (2)
  1. LANTUS [Suspect]
     Route: 058
  2. LIPITOR [Suspect]
     Route: 048

REACTIONS (3)
  - DIZZINESS [None]
  - DRUG INTERACTION [None]
  - HYPOGLYCAEMIC UNCONSCIOUSNESS [None]
